FAERS Safety Report 10551206 (Version 1)
Quarter: 2014Q4

REPORT INFORMATION
  Report Type: Spontaneous
  Country: US (occurrence: None)
  Receive Date: 20141028
  Receipt Date: 20141028
  Transmission Date: 20150529
  Serious: Yes (Hospitalization)
  Sender: FDA-Public Use
  Company Number: None

PATIENT
  Age: 80 Year
  Sex: Male
  Weight: 63.9 kg

DRUGS (26)
  1. SODIUM CHLORIDE 0.9% [Concomitant]
     Active Substance: SODIUM CHLORIDE
  2. METHYLPREDNISOLONE. [Concomitant]
     Active Substance: METHYLPREDNISOLONE
  3. DOCUSATE [Concomitant]
     Active Substance: DOCUSATE
  4. RUXOLITINIB [Suspect]
     Active Substance: RUXOLITINIB
     Indication: CHRONIC MYELOID LEUKAEMIA
     Route: 048
     Dates: start: 20140925, end: 20141010
  5. NYSTATIN/DIPHENHYDRAMINE/MAALOX/LIDOCAINE 10 ML MOUTHWASH [Concomitant]
  6. MEROPENEM. [Concomitant]
     Active Substance: MEROPENEM
  7. SULFAMETHOXAZOLE-TRIMETHOPRIM (SMZ) [Concomitant]
     Active Substance: SULFAMETHOXAZOLE\TRIMETHOPRIM
  8. LEVALBUTEROL [Concomitant]
     Active Substance: LEVALBUTEROL
  9. INSULIN REGULA [Concomitant]
  10. OSELTAMIVIR [Concomitant]
     Active Substance: OSELTAMIVIR
  11. MEROPENEM. [Concomitant]
     Active Substance: MEROPENEM
  12. SENNA [Concomitant]
     Active Substance: SENNA LEAF\SENNOSIDES\SENNOSIDES A AND B
  13. AZITHROMYCIN [Concomitant]
     Active Substance: AZITHROMYCIN ANHYDROUS
  14. METHYLNALTREXONE [Concomitant]
     Active Substance: METHYLNALTREXONE
  15. OSELLAMIVIR [Concomitant]
  16. VANCOMYCIN [Concomitant]
     Active Substance: VANCOMYCIN
  17. ONDANSELTRON [Concomitant]
  18. SODIUM BISPHOSPHATE-SODIUM PHOSPHATE [Concomitant]
  19. HYDROMORPHONE [Concomitant]
     Active Substance: HYDROMORPHONE
  20. JUVEN W/HMB [Concomitant]
  21. ALBUTEROL. [Concomitant]
     Active Substance: ALBUTEROL
  22. ABSORBIC ACID [Concomitant]
  23. AMINOCAPROIC ACID 5,000 MG (LGM/HR) + SODIUM CHLORIDE 0.9% [Concomitant]
  24. FUROSEMIDE. [Concomitant]
     Active Substance: FUROSEMIDE
  25. POTASSIUM CHLORIDE IN NS [Concomitant]
  26. PENTAPROZOLE [Concomitant]

REACTIONS (3)
  - Pleural effusion [None]
  - Pneumothorax [None]
  - Pulmonary haemorrhage [None]

NARRATIVE: CASE EVENT DATE: 20141010
